FAERS Safety Report 4647865-6 (Version None)
Quarter: 2005Q2

REPORT INFORMATION
  Report Type: 
  Country: None (occurrence: None)
  Receive Date: 20050428
  Receipt Date: 20050329
  Transmission Date: 20051028
  Serious: Yes (Hospitalization)
  Sender: FDA-Public Use
  Company Number: DE-GLAXOSMITHKLINE-D0046245A

PATIENT
  Age: 75 Year
  Sex: Male

DRUGS (2)
  1. ZEFFIX [Suspect]
     Indication: HEPATITIS CHRONIC ACTIVE
     Route: 065
     Dates: start: 20050301
  2. MARCUMAR [Concomitant]
     Indication: AORTIC VALVE INCOMPETENCE
     Route: 065

REACTIONS (1)
  - PETIT MAL EPILEPSY [None]
